FAERS Safety Report 7579884-4 (Version None)
Quarter: 2011Q2

REPORT INFORMATION
  Report Type: 
  Country: None (occurrence: None)
  Receive Date: 20110629
  Receipt Date: 20110616
  Transmission Date: 20111010
  Serious: Yes (Hospitalization, Other)
  Sender: FDA-Public Use
  Company Number: BR-ELI_LILLY_AND_COMPANY-BR201106005076

PATIENT
  Sex: Female
  Weight: 38 kg

DRUGS (6)
  1. FORTEO [Suspect]
     Dosage: UNK, OTHER
     Route: 065
  2. FORTEO [Suspect]
     Indication: OSTEOPOROSIS
     Dosage: UNK, QD
     Route: 065
     Dates: start: 20090801
  3. TYLENOL                                 /SCH/ [Concomitant]
     Indication: PAIN
     Dosage: UNK
     Route: 065
  4. DIPIRONA [Concomitant]
     Indication: PAIN
     Dosage: UNK
     Route: 065
  5. ANADOR [Concomitant]
     Indication: PAIN
     Dosage: UNK
     Route: 065
  6. NORIPURUM [Concomitant]
     Dosage: UNK
     Route: 065

REACTIONS (9)
  - MENTAL DISORDER [None]
  - PHARYNGEAL MASS [None]
  - SYNCOPE [None]
  - DIARRHOEA [None]
  - DYSPHAGIA [None]
  - WEIGHT DECREASED [None]
  - EATING DISORDER [None]
  - OESOPHAGEAL CARCINOMA [None]
  - DRUG DOSE OMISSION [None]
